FAERS Safety Report 24720807 (Version 2)
Quarter: 2025Q1

REPORT INFORMATION
  Report Type: Spontaneous
  Country: US (occurrence: US)
  Receive Date: 20241211
  Receipt Date: 20250115
  Transmission Date: 20250409
  Serious: No
  Sender: Haleon PLC
  Company Number: US-MMM-Q8IEJROX

PATIENT
  Sex: Female
  Weight: 76.2 kg

DRUGS (4)
  1. IBUPROFEN [Suspect]
     Active Substance: IBUPROFEN
     Indication: Product used for unknown indication
  2. VITAMIN C [Concomitant]
     Active Substance: ASCORBIC ACID
     Indication: Product used for unknown indication
  3. VITAMIN D3 [Concomitant]
     Active Substance: CHOLECALCIFEROL
     Indication: Product used for unknown indication
  4. CHLOROPHYLL [Concomitant]
     Indication: Product used for unknown indication

REACTIONS (1)
  - Blood pressure increased [Recovered/Resolved]
